FAERS Safety Report 9060372 (Version 10)
Quarter: 2013Q4

REPORT INFORMATION
  Report Type: Report from Study
  Country: NL (occurrence: NL)
  Receive Date: 20130212
  Receipt Date: 20131227
  Transmission Date: 20140711
  Serious: Yes (Hospitalization)
  Sender: FDA-Public Use
  Company Number: NL-ROCHE-1180739

PATIENT
  Age: 63 Year
  Sex: Female

DRUGS (33)
  1. PERTUZUMAB [Suspect]
     Indication: BREAST CANCER
     Dosage: LOADING DOSE AS PER MANUAL
     Route: 042
     Dates: start: 20121123, end: 20121123
  2. PERTUZUMAB [Suspect]
     Dosage: TEMPORARILY INTERRUPTED ON 25/JAN/2013 DUE TO PNEUMONIA. TEMPORARILY INTERRUPTED ON 01/FEB/2013 DUE
     Route: 042
     Dates: start: 20121214, end: 20130125
  3. PERTUZUMAB [Suspect]
     Route: 042
     Dates: start: 20130222
  4. TRASTUZUMAB [Suspect]
     Indication: BREAST CANCER
     Dosage: DOSE: 8MG/KG AS PER PROTOCOL.
     Route: 042
     Dates: start: 20121123, end: 20121123
  5. TRASTUZUMAB [Suspect]
     Dosage: DOSE: 6MG/KG AS PER PROTOCOL. TEMPORARILY INTERRUPTED ON 25/JAN/2013 DUE TO PNEUMONIA.
     Route: 042
     Dates: start: 20121214, end: 20130125
  6. TRASTUZUMAB [Suspect]
     Dosage: DOSE: 6MG/KG AS PER PROTOCOL.
     Route: 042
     Dates: start: 20130222
  7. PACLITAXEL [Suspect]
     Indication: BREAST CANCER
     Dosage: TEMPORARAILY INTERRUPTED ON 18/JAN/2013 DUE TO PNEUMONIA.
     Route: 042
     Dates: start: 20121123, end: 20130118
  8. PACLITAXEL [Suspect]
     Dosage: PERMANENTLY DISCONTINUED ON 01/FEB/2013 DUE TO MALAISE.
     Route: 065
     Dates: start: 20130125, end: 20130201
  9. METFORMIN [Suspect]
     Indication: TYPE 2 DIABETES MELLITUS
     Route: 065
     Dates: start: 20110913, end: 20130221
  10. METFORMIN [Suspect]
     Route: 065
     Dates: start: 20110913
  11. AUGMENTIN [Suspect]
     Indication: PRODUCT USED FOR UNKNOWN INDICATION
     Route: 065
     Dates: start: 20130122, end: 20130127
  12. AUGMENTIN [Suspect]
     Route: 065
     Dates: start: 20130728, end: 20130804
  13. FLUCLOXACILLIN [Concomitant]
     Indication: PRODUCT USED FOR UNKNOWN INDICATION
     Route: 065
     Dates: start: 20130108, end: 20130114
  14. ASCAL [Concomitant]
     Indication: PROPHYLAXIS
     Route: 065
     Dates: start: 19970424
  15. DICLOFENAC [Concomitant]
     Indication: PAIN
     Route: 065
  16. ESOMEPRAZOLE [Concomitant]
     Indication: PROPHYLAXIS
     Route: 065
  17. LOPERAMIDE [Concomitant]
     Route: 065
     Dates: start: 20121205, end: 20130916
  18. APD INTRAVENOUS [Concomitant]
     Route: 065
     Dates: start: 20121129, end: 20130117
  19. APD INTRAVENOUS [Concomitant]
     Route: 065
     Dates: start: 20130404
  20. FORADIL [Concomitant]
     Indication: CHRONIC OBSTRUCTIVE PULMONARY DISEASE
     Route: 065
     Dates: start: 201210
  21. FLIXOTIDE [Concomitant]
     Indication: CHRONIC OBSTRUCTIVE PULMONARY DISEASE
     Route: 065
     Dates: start: 201210
  22. FLIXOTIDE [Concomitant]
     Route: 065
  23. ATROVENT [Concomitant]
     Indication: CHRONIC OBSTRUCTIVE PULMONARY DISEASE
     Route: 065
     Dates: start: 201210
  24. OXAZEPAM [Concomitant]
     Route: 065
     Dates: start: 20130113
  25. SIMVASTIN [Concomitant]
     Indication: PROPHYLAXIS
     Route: 065
  26. MAGNESIUM HYDROXIDE [Concomitant]
     Route: 065
     Dates: start: 20130121, end: 20130211
  27. LASIX [Concomitant]
     Route: 065
     Dates: start: 20130115, end: 20130115
  28. CLINDAMYCINE [Concomitant]
     Route: 065
     Dates: start: 20130129, end: 20130211
  29. CIPRO [Concomitant]
     Route: 065
     Dates: start: 20130129, end: 20130211
  30. CIPRO [Concomitant]
     Route: 065
     Dates: start: 20130307, end: 20130317
  31. ENALAPRIL [Concomitant]
     Route: 065
     Dates: start: 20130425, end: 20130812
  32. FOSTER (NETHERLANDS) [Concomitant]
     Route: 065
     Dates: start: 20130621
  33. FLAGYL [Concomitant]
     Route: 065
     Dates: start: 20120614, end: 20130624

REACTIONS (3)
  - Malaise [Recovered/Resolved]
  - Pneumonia [Recovered/Resolved]
  - Dyspnoea [Recovered/Resolved]
